FAERS Safety Report 14859346 (Version 1)
Quarter: 2018Q2

REPORT INFORMATION
  Report Type: Spontaneous
  Country: US (occurrence: US)
  Receive Date: 20180422
  Receipt Date: 20180422
  Transmission Date: 20180711
  Serious: Yes (Hospitalization)
  Sender: FDA-Public Use
  Company Number: None

PATIENT
  Age: 70 Year
  Sex: Male
  Weight: 108 kg

DRUGS (1)
  1. INDOMETHACIN. [Suspect]
     Active Substance: INDOMETHACIN
     Indication: GOUT
     Route: 048
     Dates: start: 20130910, end: 20170902

REACTIONS (4)
  - Mouth swelling [None]
  - Angioedema [None]
  - Swollen tongue [None]
  - Idiopathic angioedema [None]

NARRATIVE: CASE EVENT DATE: 20170902
